FAERS Safety Report 8766851 (Version 1)
Quarter: 2012Q4

REPORT INFORMATION
  Report Type: 
  Country: BR (occurrence: BR)
  Receive Date: 20120904
  Receipt Date: 20120904
  Transmission Date: 20130627
  Serious: Yes (Other)
  Sender: FDA-Public Use
  Company Number: PHHY2012BR076169

PATIENT
  Sex: Male
  Weight: 96 kg

DRUGS (5)
  1. EXELON PATCH [Suspect]
     Indication: DEMENTIA ALZHEIMER^S TYPE
     Dosage: 1 patch (9.5mg), QD
     Route: 062
     Dates: start: 201203
  2. RECONTEUR [Concomitant]
     Indication: DEPRESSED MOOD
     Dosage: 1 DF, QD
  3. EBIXA [Concomitant]
     Indication: DEMENTIA ALZHEIMER^S TYPE
     Dosage: 1 tablet daily
  4. PROSTAT [Concomitant]
     Indication: PROSTATOMEGALY
     Dosage: 1 DF, QD
  5. KETOPROFEN [Concomitant]
     Dosage: UNK

REACTIONS (4)
  - Disorientation [Unknown]
  - Cognitive disorder [Unknown]
  - Aggression [Unknown]
  - Fear [Unknown]
